FAERS Safety Report 8484185-6 (Version None)
Quarter: 2012Q3

REPORT INFORMATION
  Report Type: 
  Country: None (occurrence: None)
  Receive Date: 20120703
  Receipt Date: 20120627
  Transmission Date: 20120928
  Serious: Yes (Hospitalization)
  Sender: FDA-Public Use
  Company Number: US-AMGEN-USACT2012035892

PATIENT
  Age: 73 Year
  Sex: Female
  Weight: 52 kg

DRUGS (17)
  1. CARBOPLATIN [Concomitant]
     Indication: NON-SMALL CELL LUNG CANCER
     Dosage: UNK
     Route: 042
     Dates: start: 20120131
  2. VITAMIN D [Concomitant]
     Indication: MEDICAL DIET
     Dosage: 100 IU, UNK
     Route: 048
  3. MAGNESIUM OXIDE [Concomitant]
     Indication: ELECTROLYTE SUBSTITUTION THERAPY
     Dosage: 416 MG, UNK
     Route: 048
  4. SENNA-MINT WAF [Concomitant]
     Indication: CONSTIPATION
     Dosage: UNK UNK, PRN
     Route: 048
  5. PANITUMUMAB [Suspect]
     Indication: NON-SMALL CELL LUNG CANCER
     Dosage: 2.5 MG/KG, UNK
     Route: 042
     Dates: start: 20120131, end: 20120306
  6. TAXOL [Concomitant]
     Indication: NON-SMALL CELL LUNG CANCER
     Dosage: UNK MG/M2, UNK
     Route: 042
     Dates: start: 20120131
  7. ONDANSETRON [Concomitant]
     Indication: NAUSEA
     Dosage: UNK UNK, PRN
     Route: 048
     Dates: start: 20120506
  8. MIRALAX [Concomitant]
     Indication: BOWEL MOVEMENT IRREGULARITY
     Dosage: 17 G, UNK
     Route: 048
  9. RADIOTHERAPY [Concomitant]
     Indication: NON-SMALL CELL LUNG CANCER
     Dosage: UNK
     Dates: start: 20120131
  10. MULTIPLE VITAMIN [Concomitant]
     Indication: MEDICAL DIET
     Dosage: UNK
     Route: 048
  11. GUAIFENESIN [Concomitant]
     Indication: COUGH
     Dosage: 600 MG, BID
  12. NEXIUM [Concomitant]
     Indication: REFLUX GASTRITIS
     Dosage: 40 MG, QD
     Route: 048
  13. LEVOTHYROXINE SODIUM [Concomitant]
     Indication: HYPOTHYROIDISM
     Dosage: 100 MUG, UNK
     Route: 048
  14. ACETAMINOPHEN [Concomitant]
     Indication: PAIN
     Dosage: 500 MG, UNK
     Route: 048
  15. ACETAMINOPHEN AND OXYCODONE HCL [Concomitant]
     Indication: PAIN
     Dosage: UNK
     Route: 048
     Dates: start: 20120306
  16. ROZEREM [Concomitant]
     Indication: INSOMNIA
     Dosage: 8 MG, UNK
     Route: 048
     Dates: start: 20120507
  17. FISH OIL [Concomitant]
     Indication: MEDICAL DIET
     Dosage: UNK
     Route: 048

REACTIONS (1)
  - PNEUMONITIS [None]
